FAERS Safety Report 23557884 (Version 1)
Quarter: 2024Q1

REPORT INFORMATION
  Report Type: Spontaneous
  Country: CN (occurrence: CN)
  Receive Date: 20240223
  Receipt Date: 20240223
  Transmission Date: 20240410
  Serious: Yes (Other)
  Sender: FDA-Public Use
  Company Number: CN-ABBVIE-5649192

PATIENT
  Age: 28 Year
  Sex: Female
  Weight: 60 kg

DRUGS (5)
  1. VENETOCLAX [Suspect]
     Active Substance: VENETOCLAX
     Indication: Acute leukaemia
     Route: 048
     Dates: start: 20240126, end: 20240204
  2. VENETOCLAX [Suspect]
     Active Substance: VENETOCLAX
     Indication: Acute leukaemia
     Dosage: FIRST ADMIN DATE: FEB 2024
     Route: 048
  3. AZACITIDINE [Suspect]
     Active Substance: AZACITIDINE
     Indication: Acute leukaemia
     Dosage: DOSE 0.1 GRAM
     Route: 058
     Dates: start: 20240126, end: 20240201
  4. SELINEXOR [Suspect]
     Active Substance: SELINEXOR
     Indication: Acute leukaemia
     Dosage: FREQUENCY 3.5 DAYS
     Route: 048
     Dates: start: 20240126, end: 20240204
  5. SELINEXOR [Suspect]
     Active Substance: SELINEXOR
     Indication: Acute leukaemia
     Dosage: FREQUENCY 3.5 DAYS ?FIRST ADMIN DATE: FEB 2024
     Route: 048

REACTIONS (1)
  - Myelosuppression [Unknown]

NARRATIVE: CASE EVENT DATE: 20240203
